FAERS Safety Report 5611437-7 (Version None)
Quarter: 2008Q1

REPORT INFORMATION
  Report Type: 
  Country: None (occurrence: None)
  Receive Date: 20080201
  Receipt Date: 20080122
  Transmission Date: 20080703
  Serious: Yes (Other)
  Sender: FDA-Public Use
  Company Number: US-ELI_LILLY_AND_COMPANY-US200801000110

PATIENT
  Sex: Female
  Weight: 104.31 kg

DRUGS (16)
  1. BYETTA [Suspect]
     Dosage: 5 UG, 2/D
     Route: 058
     Dates: start: 20070828, end: 20071227
  2. METFORMIN /00082702/ [Concomitant]
     Dosage: 1000 MG, EACH MORNING
     Route: 048
  3. METFORMIN /00082702/ [Concomitant]
     Dosage: 1500 MG, EACH EVENING
     Route: 048
  4. GLIPIZIDE [Concomitant]
     Dosage: 10 MG, DAILY (1/D)
     Route: 048
  5. ACTOS [Concomitant]
     Dosage: 45 MG, UNK
     Route: 048
     Dates: end: 20070827
  6. ADVAIR DISKUS 100/50 [Concomitant]
     Indication: ASTHMA
     Dosage: UNK, DAILY (1/D)
     Route: 055
  7. BENICAR HCT [Concomitant]
     Indication: HYPERTENSION
     Route: 048
  8. ATENOLOL [Concomitant]
     Dosage: 50 MG, DAILY (1/D)
     Route: 048
  9. ZOLOFT [Concomitant]
     Indication: STRESS
     Dosage: 100 MG, DAILY (1/D)
     Route: 048
     Dates: start: 20030101
  10. ASPIRIN [Concomitant]
     Dosage: 81 MG, DAILY (1/D)
  11. DETROL [Concomitant]
     Dosage: 4 MG, DAILY (1/D)
  12. ALBUTEROL [Concomitant]
     Dosage: 90 UG, 3/D
  13. PREMARIN [Concomitant]
     Dosage: 0.3 MG, QOD
  14. PREVACID [Concomitant]
     Dosage: 30 MG, UNKNOWN
  15. ZOCOR [Concomitant]
     Dosage: 10 MG, UNKNOWN
  16. MACRODANTIN [Concomitant]
     Dosage: 50 MG, UNKNOWN

REACTIONS (2)
  - HYPERSENSITIVITY [None]
  - WEIGHT DECREASED [None]
